FAERS Safety Report 12767797 (Version 1)
Quarter: 2016Q3

REPORT INFORMATION
  Report Type: Spontaneous
  Country: GB (occurrence: GB)
  Receive Date: 20160921
  Receipt Date: 20160921
  Transmission Date: 20161109
  Serious: Yes (Hospitalization)
  Sender: FDA-Public Use
  Company Number: PHHY2016GB126418

PATIENT
  Age: 91 Year
  Sex: Female

DRUGS (4)
  1. ASPIRIN//ACETYLSALICYLIC ACID [Concomitant]
     Active Substance: ASPIRIN
     Indication: ANTICOAGULANT THERAPY
     Route: 065
  2. FUROSEMIDE. [Concomitant]
     Active Substance: FUROSEMIDE
     Indication: CARDIAC FAILURE CONGESTIVE
     Route: 065
  3. CALCIUM [Concomitant]
     Active Substance: CALCIUM
     Indication: PRODUCT USED FOR UNKNOWN INDICATION
     Route: 065
  4. RAMIPRIL. [Suspect]
     Active Substance: RAMIPRIL
     Indication: HYPERTENSION
     Dosage: 1.25 MG, UNK
     Route: 065
     Dates: start: 20160818, end: 20160820

REACTIONS (5)
  - Wrong technique in product usage process [Unknown]
  - Bronchospasm [Recovered/Resolved]
  - Productive cough [Recovering/Resolving]
  - Angioedema [Recovering/Resolving]
  - Hypopnoea [Recovered/Resolved]

NARRATIVE: CASE EVENT DATE: 20160818
